FAERS Safety Report 4652228-3 (Version None)
Quarter: 2005Q2

REPORT INFORMATION
  Report Type: 
  Country: None (occurrence: None)
  Receive Date: 20050502
  Receipt Date: 20050414
  Transmission Date: 20051028
  Serious: Yes (Other)
  Sender: FDA-Public Use
  Company Number: 2005060148

PATIENT
  Age: 37 Year
  Sex: Female
  Weight: 65.7716 kg

DRUGS (1)
  1. DEPO-PROVERA [Suspect]
     Indication: CONTRACEPTION
     Dosage: 150 MG, FIRST INJECTION/EVERY 10-13 WKS) INTRAMUSCULAR
     Route: 030
     Dates: start: 20050408, end: 20050408

REACTIONS (3)
  - AMENORRHOEA [None]
  - BLOOD URINE PRESENT [None]
  - DYSURIA [None]
